FAERS Safety Report 17809826 (Version 1)
Quarter: 2020Q2

REPORT INFORMATION
  Report Type: Spontaneous
  Country: GB (occurrence: GB)
  Receive Date: 20200520
  Receipt Date: 20200520
  Transmission Date: 20200714
  Serious: Yes (Death)
  Sender: FDA-Public Use
  Company Number: GB-DAITOPHA-2020-US-000008

PATIENT
  Sex: 0

DRUGS (1)
  1. RILUZOLE. [Suspect]
     Active Substance: RILUZOLE

REACTIONS (2)
  - Coronary artery thrombosis [Fatal]
  - Myocardial ischaemia [Fatal]
